FAERS Safety Report 20740011 (Version 1)
Quarter: 2022Q2

REPORT INFORMATION
  Report Type: Spontaneous
  Country: US (occurrence: None)
  Receive Date: 20220422
  Receipt Date: 20220422
  Transmission Date: 20220721
  Serious: Yes (Life-Threatening, Hospitalization)
  Sender: FDA-Public Use
  Company Number: None

PATIENT
  Age: 83 Year
  Sex: Male
  Weight: 85.05 kg

DRUGS (1)
  1. CAPECITABINE [Suspect]
     Active Substance: CAPECITABINE
     Indication: Rectal cancer
     Dosage: FREQUENCY : TWICE A DAY;?
     Route: 048
     Dates: start: 20220216, end: 20220402

REACTIONS (5)
  - Adverse drug reaction [None]
  - Diarrhoea [None]
  - Mucosal inflammation [None]
  - Confusional state [None]
  - Skin exfoliation [None]

NARRATIVE: CASE EVENT DATE: 20220404
